FAERS Safety Report 24071873 (Version 1)
Quarter: 2024Q3

REPORT INFORMATION
  Report Type: Spontaneous
  Country: US (occurrence: None)
  Receive Date: 20240709
  Receipt Date: 20240709
  Transmission Date: 20241016
  Serious: Yes (Other)
  Sender: Public
  Company Number: None

PATIENT
  Sex: Female
  Weight: 88.9 kg

DRUGS (2)
  1. NALTREXONE [Suspect]
     Active Substance: NALTREXONE
     Dosage: FREQUENCY : TWICE A DAY;?
     Route: 048
  2. BUPROPION [Concomitant]
     Active Substance: BUPROPION

REACTIONS (1)
  - Thinking abnormal [None]
